FAERS Safety Report 18682450 (Version 1)
Quarter: 2020Q4

REPORT INFORMATION
  Report Type: Spontaneous
  Country: US (occurrence: US)
  Receive Date: 20201230
  Receipt Date: 20201230
  Transmission Date: 20210114
  Serious: Yes (Death, Other)
  Sender: FDA-Public Use
  Company Number: US-SA-2020SA375855

PATIENT

DRUGS (1)
  1. ZANTAC [Suspect]
     Active Substance: RANITIDINE HYDROCHLORIDE
     Indication: DYSPEPSIA
     Dosage: UNK, QD
     Dates: start: 200507, end: 201010

REACTIONS (5)
  - Gastrointestinal carcinoma [Unknown]
  - Gastric cancer [Unknown]
  - Colorectal cancer [Fatal]
  - Pancreatic carcinoma [Unknown]
  - Bladder cancer [Unknown]

NARRATIVE: CASE EVENT DATE: 20090101
